FAERS Safety Report 4433354-0 (Version None)
Quarter: 2004Q3

REPORT INFORMATION
  Report Type: 
  Country: None (occurrence: None)
  Receive Date: 20040824
  Receipt Date: 20040816
  Transmission Date: 20050211
  Serious: Yes (Hospitalization, Other)
  Sender: FDA-Public Use
  Company Number: 2004IM000806

PATIENT
  Age: 68 Year
  Sex: Female

DRUGS (3)
  1. INFERGEN [Suspect]
     Dosage: 12 MU;  QD; SUBCUTANEOUS
     Route: 058
     Dates: start: 20040501, end: 20040806
  2. URSODEOXYCHOLIC ACID [Concomitant]
  3. SOFALCONE [Concomitant]

REACTIONS (2)
  - ALANINE AMINOTRANSFERASE INCREASED [None]
  - ASPARTATE AMINOTRANSFERASE INCREASED [None]
